FAERS Safety Report 7443478-1 (Version None)
Quarter: 2011Q2

REPORT INFORMATION
  Report Type: 
  Country: None (occurrence: None)
  Receive Date: 20110428
  Receipt Date: 20110419
  Transmission Date: 20111010
  Serious: Yes (Hospitalization, Other)
  Sender: FDA-Public Use
  Company Number: US-ASTRAZENECA-2011SE22865

PATIENT
  Age: 65 Year
  Sex: Female

DRUGS (4)
  1. FEMARA [Concomitant]
  2. SYMBICORT [Suspect]
     Indication: ASTHMA
     Dosage: 160/4.5 TWO PUFFS TWICE A DAY
     Route: 055
  3. ALBUTEROL [Concomitant]
  4. VENTOLIN [Concomitant]

REACTIONS (4)
  - BREAST CANCER [None]
  - INFECTION [None]
  - MASTECTOMY [None]
  - DRUG DOSE OMISSION [None]
